FAERS Safety Report 7546820-6 (Version None)
Quarter: 2011Q2

REPORT INFORMATION
  Report Type: 
  Country: None (occurrence: None)
  Receive Date: 20110607
  Receipt Date: 20110523
  Transmission Date: 20111010
  Serious: Yes (Other)
  Sender: FDA-Public Use
  Company Number: 2011MA006323

PATIENT
  Age: 3 Year
  Sex: Male

DRUGS (1)
  1. CARBAMAZEPINE [Suspect]
     Dosage: 20 MG/KG;OD

REACTIONS (2)
  - EPILEPSY [None]
  - ELECTROENCEPHALOGRAM ABNORMAL [None]
